FAERS Safety Report 5713347-3 (Version None)
Quarter: 2008Q2

REPORT INFORMATION
  Report Type: 
  Country: None (occurrence: None)
  Receive Date: 20080422
  Receipt Date: 20080416
  Transmission Date: 20081010
  Serious: Yes (Death)
  Sender: FDA-Public Use
  Company Number: JP-PFIZER INC-2007107768

PATIENT
  Age: 66 Year
  Sex: Male

DRUGS (5)
  1. NORVASC [Suspect]
     Indication: HYPERTENSION
     Dosage: DAILY DOSE:5MG
     Route: 048
     Dates: start: 19980101, end: 20071205
  2. MICARDIS [Concomitant]
     Route: 048
  3. AMARYL [Concomitant]
     Route: 048
  4. BASEN [Concomitant]
     Route: 048
  5. ETHYL ICOSAPENTATE [Concomitant]
     Route: 048

REACTIONS (2)
  - ACUTE MYELOID LEUKAEMIA [None]
  - GINGIVAL HYPERTROPHY [None]
